FAERS Safety Report 24059013 (Version 1)
Quarter: 2024Q3

REPORT INFORMATION
  Report Type: Spontaneous
  Country: JP (occurrence: JP)
  Receive Date: 20240708
  Receipt Date: 20240708
  Transmission Date: 20241017
  Serious: Yes (Hospitalization)
  Sender: JUBILANT
  Company Number: JP-JUBILANT CADISTA PHARMACEUTICALS-2024JUB00055

PATIENT
  Age: 47 Year
  Sex: Female

DRUGS (8)
  1. CARBAMAZEPINE [Suspect]
     Active Substance: CARBAMAZEPINE
     Dosage: UNK
  2. BREXPIPRAZOLE [Concomitant]
     Active Substance: BREXPIPRAZOLE
     Dosage: UNK
  3. SULPIRIDE [Concomitant]
     Active Substance: SULPIRIDE
  4. BIPERIDEN [Concomitant]
     Active Substance: BIPERIDEN
  5. QUETIAPINE FUMARATE [Concomitant]
     Active Substance: QUETIAPINE FUMARATE
  6. ALPRAZOLAM [Concomitant]
     Active Substance: ALPRAZOLAM
  7. LORAZEPAM [Concomitant]
     Active Substance: LORAZEPAM
  8. DULOXETINE HYDROCHLORIDE [Concomitant]
     Active Substance: DULOXETINE HYDROCHLORIDE

REACTIONS (7)
  - Hyperkalaemia [Recovering/Resolving]
  - Hypochloraemia [Recovering/Resolving]
  - Hypocalcaemia [Recovering/Resolving]
  - Hyperphosphataemia [Recovering/Resolving]
  - Hepatic enzyme increased [Recovering/Resolving]
  - Acute kidney injury [Recovering/Resolving]
  - Liver injury [Recovering/Resolving]
